FAERS Safety Report 22357254 (Version 15)
Quarter: 2024Q2

REPORT INFORMATION
  Report Type: Spontaneous
  Country: CA (occurrence: CA)
  Receive Date: 20230524
  Receipt Date: 20240605
  Transmission Date: 20240716
  Serious: Yes (Other)
  Sender: FDA-Public Use
  Company Number: CA-CELLTRION INC.-2022CA018193

PATIENT

DRUGS (19)
  1. INFLECTRA [Suspect]
     Active Substance: INFLIXIMAB-DYYB
     Indication: Crohn^s disease
     Dosage: 600 MG, INDUCTION WEEK 0, 2, 6 THEN EVERY 8 WEEKS
     Route: 042
     Dates: start: 20221020
  2. INFLECTRA [Suspect]
     Active Substance: INFLIXIMAB-DYYB
     Dosage: 600 MG, INDUCTION WEEK 0, 2, 6 THEN EVERY 8 WEEKS
     Route: 042
     Dates: start: 20221104
  3. INFLECTRA [Suspect]
     Active Substance: INFLIXIMAB-DYYB
     Dosage: 600 MG, INDUCTION WEEK 0, 2, 6 THEN EVERY 8 WEEKS
     Route: 042
     Dates: start: 20221130
  4. INFLECTRA [Suspect]
     Active Substance: INFLIXIMAB-DYYB
     Dosage: 600 MG, INDUCTION WEEK 0, 2, 6 THEN EVERY 8 WEEKS
     Route: 042
     Dates: start: 20230125
  5. INFLECTRA [Suspect]
     Active Substance: INFLIXIMAB-DYYB
     Dosage: 600 MG, EVERY 8 WEEKS
     Route: 042
     Dates: start: 20230322
  6. INFLECTRA [Suspect]
     Active Substance: INFLIXIMAB-DYYB
     Dosage: 600 MG, EVERY 8 WEEKS
     Route: 042
     Dates: start: 20230517
  7. INFLECTRA [Suspect]
     Active Substance: INFLIXIMAB-DYYB
     Dosage: 600 MG, EVERY 8 WEEKS
     Route: 042
     Dates: start: 20230715
  8. INFLECTRA [Suspect]
     Active Substance: INFLIXIMAB-DYYB
     Dosage: 600 MG, EVERY 8 WEEKS
     Route: 042
     Dates: start: 20230906
  9. INFLECTRA [Suspect]
     Active Substance: INFLIXIMAB-DYYB
     Dosage: 600 MG AFTER 9 WEEKS AND 6 DAYS (PRESCRIBED IS EVERY 6 WEEKS)
     Route: 042
     Dates: start: 20231114
  10. INFLECTRA [Suspect]
     Active Substance: INFLIXIMAB-DYYB
     Dosage: 600 MG AFTER 9 WEEKS AND 6 DAYS (PRESCRIBED IS EVERY 6 WEEKS)
     Route: 042
     Dates: start: 20231114
  11. INFLECTRA [Suspect]
     Active Substance: INFLIXIMAB-DYYB
     Dosage: 600 MG, EVERY 6 WEEKS
     Route: 042
     Dates: start: 20231227
  12. INFLECTRA [Suspect]
     Active Substance: INFLIXIMAB-DYYB
     Dosage: 600MG, WEEK 0 (Q 0, 2, 6, THEN EVERY 8 WEEKS)
     Route: 042
     Dates: start: 20240209
  13. INFLECTRA [Suspect]
     Active Substance: INFLIXIMAB-DYYB
     Dosage: 600MG, Q 0, 2, 6, THEN EVERY 8 WEEKS (WEEK 2 REINDUCTION)
     Route: 042
     Dates: start: 20240223, end: 20240223
  14. INFLECTRA [Suspect]
     Active Substance: INFLIXIMAB-DYYB
     Dosage: 600MG, Q 0, 2, 6, THEN EVERY 8 WEEKS (WEEK 6 REINDUCTION)
     Route: 042
     Dates: start: 20240322
  15. INFLECTRA [Suspect]
     Active Substance: INFLIXIMAB-DYYB
     Dosage: 600MG, Q 0, 2, 6, THEN EVERY 8 WEEKS (600MG AFTER 9 WEEKS AND 4 DAYS)
     Route: 042
     Dates: start: 20240528
  16. CELEBREX [Concomitant]
     Active Substance: CELECOXIB
     Dosage: 1 DF, DOSAGE INFO: UNKNOWN
     Route: 065
  17. ENBREL [Concomitant]
     Active Substance: BENZYL ALCOHOL\ETANERCEPT
     Dosage: 1 DF, DOSAGE INFO: UNKNOWN
     Route: 065
  18. FOLIC ACID [Concomitant]
     Active Substance: FOLIC ACID
     Dosage: 1 DF, DOSAGE UNKNOWN
     Route: 065
  19. PREDNISONE [Concomitant]
     Active Substance: PREDNISONE
     Dosage: 1 DF, DOSAGE UNKNOWN
     Route: 065

REACTIONS (12)
  - Condition aggravated [Recovering/Resolving]
  - Anal fissure [Not Recovered/Not Resolved]
  - Arthralgia [Not Recovered/Not Resolved]
  - Aphthous ulcer [Recovered/Resolved]
  - Urinary tract infection bacterial [Recovered/Resolved]
  - Nasopharyngitis [Not Recovered/Not Resolved]
  - Hypersensitivity [Not Recovered/Not Resolved]
  - Off label use [Unknown]
  - Off label use [Unknown]
  - Off label use [Unknown]
  - Intentional product use issue [Unknown]
  - Inappropriate schedule of product administration [Unknown]

NARRATIVE: CASE EVENT DATE: 20221020
